FAERS Safety Report 5942198-X (Version None)
Quarter: 2008Q4

REPORT INFORMATION
  Report Type: 
  Country: None (occurrence: None)
  Receive Date: 20081104
  Receipt Date: 20081104
  Transmission Date: 20090506
  Serious: Yes (Hospitalization)
  Sender: FDA-Public Use
  Company Number: None

PATIENT
  Sex: Male
  Weight: 93.1 kg

DRUGS (6)
  1. CYCLOPHOSPHAMIDE [Suspect]
     Dosage: 2100 MG
  2. CYTARABINE [Suspect]
     Dosage: 158 MG
  3. MERCAPTOPURINE [Suspect]
     Dosage: 125 MG
  4. METHOTREXATE [Suspect]
     Dosage: 50 MG
  5. PEG-L-ASPARAGINASE (K-H) [Suspect]
     Dosage: 5250 UNIT
  6. VINCRISTINE SULFATE [Suspect]
     Dosage: 2 MG

REACTIONS (2)
  - DYSURIA [None]
  - HAEMATURIA [None]
